FAERS Safety Report 4336881-X (Version None)
Quarter: 2004Q2

REPORT INFORMATION
  Report Type: 
  Country: None (occurrence: None)
  Receive Date: 20040408
  Receipt Date: 20040329
  Transmission Date: 20050107
  Serious: Yes (Death)
  Sender: FDA-Public Use
  Company Number: 163-20785-04030714(0)

PATIENT
  Age: 47 Year
  Sex: Male

DRUGS (1)
  1. THALOMID [Suspect]
     Indication: SMALL CELL LUNG CANCER STAGE UNSPECIFIED
     Dosage: 100 MG, DAILY, ORAL
     Route: 048
     Dates: start: 20020225, end: 20020101

REACTIONS (3)
  - DISEASE PROGRESSION [None]
  - SEPTIC SHOCK [None]
  - SMALL CELL LUNG CANCER METASTATIC [None]
